FAERS Safety Report 8850548 (Version 3)
Quarter: 2012Q4

REPORT INFORMATION
  Report Type: 
  Country: SI (occurrence: SI)
  Receive Date: 20121019
  Receipt Date: 20121113
  Transmission Date: 20130627
  Serious: Yes (Hospitalization, Other)
  Sender: FDA-Public Use
  Company Number: SI-B.I. PHARMACEUTICALS,INC./RIDGEFIELD-2012-AP-00868AP

PATIENT
  Age: 71 Year
  Sex: Male
  Weight: 60 kg

DRUGS (4)
  1. PRADAXA [Suspect]
     Indication: ATRIAL FIBRILLATION
     Dosage: 220 mg
     Route: 048
     Dates: start: 20121001, end: 20121008
  2. PRAVASTATIN [Concomitant]
     Dosage: 20 mg
     Dates: start: 2008, end: 20121001
  3. PRAVASTATIN [Concomitant]
     Dosage: 40 mg
     Dates: start: 20121001, end: 20121008
  4. CONCOR [Concomitant]
     Dosage: 1.25 mg

REACTIONS (2)
  - Colon neoplasm [Not Recovered/Not Resolved]
  - Large intestinal haemorrhage [Not Recovered/Not Resolved]
